FAERS Safety Report 18217899 (Version 3)
Quarter: 2021Q1

REPORT INFORMATION
  Report Type: Spontaneous
  Country: US (occurrence: US)
  Receive Date: 20200901
  Receipt Date: 20210118
  Transmission Date: 20210419
  Serious: Yes (Other)
  Sender: FDA-Public Use
  Company Number: US-GILEAD-2020-0492328

PATIENT
  Age: 58 Year
  Sex: Male

DRUGS (3)
  1. TRUVADA [Suspect]
     Active Substance: EMTRICITABINE\TENOFOVIR DISOPROXIL FUMARATE
     Indication: HIV INFECTION
     Dosage: UNK
     Route: 048
     Dates: start: 20061116, end: 20160522
  2. GENVOYA [Concomitant]
     Active Substance: COBICISTAT\ELVITEGRAVIR\EMTRICITABINE\TENOFOVIR ALAFENAMIDE FUMARATE
     Indication: HIV INFECTION
  3. TRUVADA [Suspect]
     Active Substance: EMTRICITABINE\TENOFOVIR DISOPROXIL FUMARATE
     Dosage: UNK
     Route: 048
     Dates: start: 2004, end: 2015

REACTIONS (12)
  - Multiple fractures [Unknown]
  - Pain [Unknown]
  - Bone loss [Unknown]
  - Emotional distress [Unknown]
  - Anxiety [Unknown]
  - Osteonecrosis [Unknown]
  - Bone density decreased [Unknown]
  - Tooth loss [Unknown]
  - Anhedonia [Unknown]
  - Chronic kidney disease [Unknown]
  - Hand fracture [Not Recovered/Not Resolved]
  - Bone density abnormal [Unknown]

NARRATIVE: CASE EVENT DATE: 20141219
